FAERS Safety Report 6237225-9 (Version None)
Quarter: 2009Q2

REPORT INFORMATION
  Report Type: 
  Country: None (occurrence: None)
  Receive Date: 20090619
  Receipt Date: 20090611
  Transmission Date: 20091009
  Serious: Yes (Hospitalization, Other)
  Sender: FDA-Public Use
  Company Number: US-ABBOTT-09P-163-0579450-00

PATIENT
  Sex: Female
  Weight: 70.824 kg

DRUGS (3)
  1. SYNTHROID [Suspect]
     Indication: HYPOTHYROIDISM
     Dates: start: 19960101
  2. SYNTHROID [Suspect]
     Dosage: 1/2 A TABLET
     Dates: start: 19960101
  3. HYDROCHLOROTHIAZIDE [Concomitant]
     Indication: HYPERTENSION
     Dosage: UNKNOWN

REACTIONS (19)
  - ABDOMINAL DISTENSION [None]
  - ASTHMA [None]
  - BLOOD CHOLESTEROL INCREASED [None]
  - CARDIAC DISORDER [None]
  - CARDIAC FAILURE CONGESTIVE [None]
  - CATARACT [None]
  - CONSTIPATION [None]
  - DYSPNOEA EXERTIONAL [None]
  - GASTROOESOPHAGEAL REFLUX DISEASE [None]
  - HIATUS HERNIA [None]
  - HYPERTENSION [None]
  - NASAL POLYPS [None]
  - OEDEMA MOUTH [None]
  - OESOPHAGEAL MASS [None]
  - ORAL DISORDER [None]
  - PHARYNGEAL OEDEMA [None]
  - SWELLING FACE [None]
  - THYROID CANCER [None]
  - URINARY RETENTION [None]
